FAERS Safety Report 21157559 (Version 1)
Quarter: 2022Q3

REPORT INFORMATION
  Report Type: Spontaneous
  Country: US (occurrence: None)
  Receive Date: 20220730
  Receipt Date: 20220730
  Transmission Date: 20221027
  Serious: Yes (Disabling, Other)
  Sender: FDA-Public Use
  Company Number: None

PATIENT
  Age: 43 Year
  Sex: Female
  Weight: 58.5 kg

DRUGS (12)
  1. ESZOPICLONE [Suspect]
     Active Substance: ESZOPICLONE
     Indication: Insomnia
     Dosage: OTHER FREQUENCY : NIGHT 5 DAYS/WEEK;?
     Route: 048
     Dates: start: 20220729, end: 20220730
  2. LO LOESTRIN FE [Concomitant]
     Active Substance: ETHINYL ESTRADIOL\NORETHINDRONE ACETATE
  3. Omperalze [Concomitant]
  4. ADDERALL XR [Concomitant]
     Active Substance: AMPHETAMINE ASPARTATE\AMPHETAMINE SULFATE\DEXTROAMPHETAMINE SACCHARATE\DEXTROAMPHETAMINE SULFATE
  5. KLONOPIN [Concomitant]
     Active Substance: CLONAZEPAM
  6. DOXYCYCLINE [Concomitant]
     Active Substance: DOXYCYCLINE
  7. Restates eye drops [Concomitant]
  8. Loratadine Children^s chewable [Concomitant]
  9. ALBUTEROL [Concomitant]
     Active Substance: ALBUTEROL
  10. Fiber well [Concomitant]
  11. Nutrigummies [Concomitant]
  12. Omegas [Concomitant]

REACTIONS (6)
  - Choking [None]
  - Wheezing [None]
  - Dyspnoea [None]
  - Swelling face [None]
  - Drug hypersensitivity [None]
  - Documented hypersensitivity to administered product [None]

NARRATIVE: CASE EVENT DATE: 20220729
